FAERS Safety Report 19871235 (Version 1)
Quarter: 2021Q3

REPORT INFORMATION
  Report Type: Spontaneous
  Country: IT (occurrence: IT)
  Receive Date: 20210923
  Receipt Date: 20210923
  Transmission Date: 20211014
  Serious: Yes (Other)
  Sender: FDA-Public Use
  Company Number: IT-AUROBINDO-AUR-APL-2021-039602

PATIENT
  Age: 36 Year
  Sex: Female

DRUGS (2)
  1. NALOXONE [Suspect]
     Active Substance: NALOXONE
     Indication: PAIN IN EXTREMITY
     Dosage: UNK
     Route: 065
  2. OXYCODONE [Suspect]
     Active Substance: OXYCODONE
     Indication: PAIN IN EXTREMITY
     Dosage: UNK
     Route: 048

REACTIONS (1)
  - Hepatotoxicity [Unknown]
